FAERS Safety Report 8004496-8 (Version None)
Quarter: 2011Q4

REPORT INFORMATION
  Report Type: 
  Country: None (occurrence: None)
  Receive Date: 20111221
  Receipt Date: 20111221
  Transmission Date: 20120403
  Serious: Yes (Hospitalization)
  Sender: FDA-Public Use
  Company Number: None

PATIENT
  Age: 77 Year
  Sex: Female
  Weight: 54.4 kg

DRUGS (17)
  1. LISINOPRIL [Concomitant]
  2. CON'T VIT D [Concomitant]
  3. PROZAC [Concomitant]
  4. LATANOPROST [Concomitant]
  5. IRON [Concomitant]
  6. POTASSIUM CHLORIDE [Concomitant]
  7. NEXIUM [Concomitant]
  8. NOVOLIN N [Concomitant]
  9. ALBUTEROL [Concomitant]
  10. M.V.I. [Concomitant]
  11. APIDRA [Concomitant]
  12. DILANTIN [Concomitant]
  13. LASIX [Concomitant]
  14. COUMADIN [Suspect]
     Indication: ATRIAL FIBRILLATION
     Dosage: 7.5 MG DAILY PO CHRONIC
     Route: 048
  15. LEVOTHYROXINE SODIUM [Concomitant]
  16. GLIMEPIRIDE [Concomitant]
  17. SPIRONOLACTONE [Concomitant]

REACTIONS (3)
  - GASTROINTESTINAL HAEMORRHAGE [None]
  - INTERNATIONAL NORMALISED RATIO INCREASED [None]
  - RESPIRATORY FAILURE [None]
